FAERS Safety Report 9365421 (Version 2)
Quarter: 2013Q4

REPORT INFORMATION
  Report Type: Spontaneous
  Country: US (occurrence: US)
  Receive Date: 20130625
  Receipt Date: 20131022
  Transmission Date: 20140711
  Serious: Yes (Hospitalization)
  Sender: FDA-Public Use
  Company Number: US-BIOGENIDEC-2013BI055399

PATIENT
  Age: 54 Year
  Sex: Female
  Weight: 52 kg

DRUGS (12)
  1. AVONEX [Suspect]
     Indication: RELAPSING-REMITTING MULTIPLE SCLEROSIS
     Route: 030
     Dates: start: 20050603, end: 20090220
  2. AVONEX [Suspect]
     Indication: RELAPSING-REMITTING MULTIPLE SCLEROSIS
     Route: 030
  3. AVONEX [Suspect]
     Indication: RELAPSING-REMITTING MULTIPLE SCLEROSIS
     Route: 030
     Dates: start: 20110805
  4. SYMMETREL [Concomitant]
     Route: 048
  5. VITAMIN C [Concomitant]
     Route: 048
  6. TUMS [Concomitant]
     Route: 048
  7. VITAMIN D3 [Concomitant]
  8. VITAMIN B 12 [Concomitant]
     Route: 048
  9. BENADRYL [Concomitant]
     Route: 048
  10. ALEVE [Concomitant]
     Route: 048
  11. ULTRAM [Concomitant]
     Route: 048
  12. DESYREL [Concomitant]
     Route: 048

REACTIONS (5)
  - Fall [Recovered/Resolved]
  - Grand mal convulsion [Unknown]
  - Convulsion [Recovered/Resolved]
  - Urinary tract infection [Recovered/Resolved]
  - Hip fracture [Recovered/Resolved]
